FAERS Safety Report 4672452-3 (Version None)
Quarter: 2005Q2

REPORT INFORMATION
  Report Type: 
  Country: None (occurrence: None)
  Receive Date: 20050523
  Receipt Date: 20050517
  Transmission Date: 20051028
  Serious: Yes (Life-Threatening)
  Sender: FDA-Public Use
  Company Number: 05-05-0849

PATIENT
  Age: 70 Year
  Sex: Male

DRUGS (1)
  1. PRAZOSIN [Suspect]
     Indication: PROSTATISM
     Dosage: 500 MCG ORAL
     Route: 048
     Dates: start: 20040923, end: 20050419

REACTIONS (2)
  - DEPRESSION [None]
  - SUICIDAL IDEATION [None]
